FAERS Safety Report 4650584-3 (Version None)
Quarter: 2005Q2

REPORT INFORMATION
  Report Type: 
  Country: None (occurrence: None)
  Receive Date: 20050429
  Receipt Date: 20050429
  Transmission Date: 20051028
  Serious: No
  Sender: FDA-Public Use
  Company Number: None

PATIENT
  Sex: Female
  Weight: 118 kg

DRUGS (2)
  1. XELODA [Suspect]
     Dates: start: 20041117, end: 20041207
  2. CAMPTOSAR [Suspect]
     Dates: start: 20041117, end: 20041201

REACTIONS (3)
  - DEHYDRATION [None]
  - DIARRHOEA [None]
  - MULTI-ORGAN FAILURE [None]
